FAERS Safety Report 9045843 (Version 1)
Quarter: 2013Q1

REPORT INFORMATION
  Report Type: Report from Study
  Country: US (occurrence: US)
  Receive Date: 20130201
  Receipt Date: 20130201
  Transmission Date: 20140127
  Serious: No
  Sender: FDA-Public Use
  Company Number: US-ABBOTT-12P-163-0986675-00

PATIENT
  Age: 58 Year
  Sex: Female

DRUGS (29)
  1. HUMIRA [Suspect]
     Indication: ANKYLOSING SPONDYLITIS
     Route: 058
     Dates: start: 20120913
  2. VITAMIN D [Concomitant]
     Indication: VITAMIN D DECREASED
  3. REVATIO [Concomitant]
     Indication: PULMONARY HYPERTENSION
  4. SIMVASTATIN [Concomitant]
     Indication: BLOOD CHOLESTEROL INCREASED
     Dosage: 10MG NIGHTLY
  5. DETROL LA [Concomitant]
     Indication: URINARY INCONTINENCE
     Dosage: 4MG DAILY
     Dates: end: 201211
  6. OXYCONTIN [Concomitant]
     Indication: FIBROMYALGIA
  7. OXYCONTIN [Concomitant]
     Indication: ARTHRITIS
  8. MINOCYCLINE [Concomitant]
     Indication: HYPERSENSITIVITY
     Dates: start: 20120917
  9. MINOCYCLINE [Concomitant]
     Dosage: 100MG DAILY
  10. DEFONIDE [Concomitant]
     Indication: PRURITUS
     Dosage: 3 TIMES DAILY AS NEEDED
     Dates: start: 20120813
  11. CLINDAMYCIN PHOS 1% [Concomitant]
     Indication: ACNE
     Route: 061
     Dates: start: 201208
  12. DILTIAZEM CD ER [Concomitant]
     Indication: PALPITATIONS
     Dosage: 120MG DAILY
  13. AMITIZA [Concomitant]
     Indication: IRRITABLE BOWEL SYNDROME
  14. ZETIA [Concomitant]
     Indication: BLOOD CHOLESTEROL INCREASED
  15. LYRICA [Concomitant]
     Indication: FIBROMYALGIA
  16. LISINOPRIL HCTZ [Concomitant]
     Indication: BLOOD PRESSURE
     Dosage: 20/25 TAB; ONCE DAILY
  17. LISINOPRIL HCTZ [Concomitant]
     Indication: FLUID RETENTION
  18. LEXAPRO [Concomitant]
     Indication: DEPRESSION
  19. METHYLTREXATE [Concomitant]
     Indication: OSTEOARTHRITIS
     Dosage: 2.5MG X 4 TABLETS ONCE A WEEK
  20. ASA [Concomitant]
     Indication: PROPHYLAXIS
  21. WELLBUTRIN SR [Concomitant]
     Indication: DEPRESSION
  22. NEXIUM [Concomitant]
     Indication: ABDOMINAL DISCOMFORT
  23. MULTIVITAMIN [Concomitant]
     Indication: PRODUCT USED FOR UNKNOWN INDICATION
     Dosage: ONCE DAILY
  24. ZOLPIDEM [Concomitant]
     Indication: INSOMNIA
     Dosage: 10MG, AS NEEDED, USUALLY HALF TABLET
  25. PERCOCET [Concomitant]
     Indication: ANKYLOSING SPONDYLITIS
     Dosage: 5/325 1 TAB EVERY 4 HRS AS NEEDED FOR PAIN/1 OR 2 DAILY (MOSTLY IN EVENING)
  26. PERCOCET [Concomitant]
     Indication: ARTHRALGIA
  27. PRO BIOTIC [Concomitant]
     Indication: GASTROINTESTINAL DISORDER
     Dosage: ONCE DAILY
  28. STOOL SOFTNER [Concomitant]
     Indication: PRODUCT USED FOR UNKNOWN INDICATION
     Dosage: 100MG TWICE DAILY; 2 IN MORNING AND 2 AT NIGHT
  29. SILIUM FIBER [Concomitant]
     Indication: FLATULENCE
     Dosage: 1 TABLESPOON

REACTIONS (8)
  - Cough [Recovered/Resolved]
  - Headache [Not Recovered/Not Resolved]
  - Rhinalgia [Not Recovered/Not Resolved]
  - Sinus headache [Not Recovered/Not Resolved]
  - Asthma [Recovered/Resolved]
  - Wheezing [Not Recovered/Not Resolved]
  - Dyspnoea [Not Recovered/Not Resolved]
  - Bronchitis [Not Recovered/Not Resolved]
